FAERS Safety Report 6286689-3 (Version None)
Quarter: 2009Q3

REPORT INFORMATION
  Report Type: 
  Country: None (occurrence: None)
  Receive Date: 20090727
  Receipt Date: 20090727
  Transmission Date: 20100115
  Serious: Yes (Other)
  Sender: FDA-Public Use
  Company Number: None

PATIENT
  Sex: Male
  Weight: 124.7392 kg

DRUGS (2)
  1. ZICAM SWABS [Suspect]
     Dosage: 1-SWAB 4-6 HOURS
  2. ZICAM NASAL GEL [Suspect]
     Dosage: GEL 4-6 HOURS

REACTIONS (1)
  - ANOSMIA [None]
